FAERS Safety Report 7282255-1 (Version None)
Quarter: 2011Q1

REPORT INFORMATION
  Report Type: 
  Country: None (occurrence: None)
  Receive Date: 20110125
  Receipt Date: 20101231
  Transmission Date: 20110831
  Serious: Yes (Death)
  Sender: FDA-Public Use
  Company Number: AUR-APL-2011-00073

PATIENT
  Age: 67 Year
  Sex: Male

DRUGS (5)
  1. ETHANOL [Suspect]
     Dosage: ORAL
     Route: 048
  2. ACETAMINOPHEN AND HYDROCODONE BITARTRATE [Suspect]
     Dosage: ORAL
     Route: 048
  3. PRAMIPEXOLE [Suspect]
     Dosage: ORAL
     Route: 048
  4. CYCLOBENZAPRINE [Suspect]
  5. CITALOPRAM [Suspect]

REACTIONS (1)
  - DEATH [None]
